FAERS Safety Report 8460269-3 (Version None)
Quarter: 2012Q2

REPORT INFORMATION
  Report Type: 
  Country: None (occurrence: None)
  Receive Date: 20120323
  Receipt Date: 20111122
  Transmission Date: 20120825
  Serious: Yes (Hospitalization, Other)
  Sender: FDA-Public Use
  Company Number: 163-21880-11092729

PATIENT
  Age: 70 Year
  Sex: Male
  Weight: 78.9259 kg

DRUGS (4)
  1. VITAMIN D [Concomitant]
  2. REVLIMID [Suspect]
     Indication: MULTIPLE MYELOMA
     Dosage: 25 MG, DAILY ON DAYS 1-21 EVERY 28 DAYS, PO
     Route: 048
     Dates: start: 20110615
  3. MULTIVITAMIN [Concomitant]
  4. ASPIRIN [Concomitant]

REACTIONS (2)
  - PULMONARY THROMBOSIS [None]
  - ARTHRITIS BACTERIAL [None]
